FAERS Safety Report 6745750-7 (Version None)
Quarter: 2010Q2

REPORT INFORMATION
  Report Type: 
  Country: None (occurrence: None)
  Receive Date: 20100528
  Receipt Date: 20100517
  Transmission Date: 20101027
  Serious: Yes (Hospitalization)
  Sender: FDA-Public Use
  Company Number: PHHY2010FR07987

PATIENT
  Sex: Male
  Weight: 60 kg

DRUGS (3)
  1. ICL670A ICL+ [Suspect]
     Dosage: 1000 MG, DAILY
     Route: 048
     Dates: start: 20070911
  2. ORACILLINE [Concomitant]
     Indication: SPLENECTOMY
     Dosage: 2 M IU DAILY
     Dates: start: 19930101
  3. SPECIAFOLDINE [Concomitant]
     Indication: ANAEMIA
     Dosage: UNK
     Dates: start: 19920101

REACTIONS (5)
  - ASTHENIA [None]
  - EAR PAIN [None]
  - HEADACHE [None]
  - HYPOACUSIS [None]
  - PYREXIA [None]
